FAERS Safety Report 14145696 (Version 1)
Quarter: 2017Q4

REPORT INFORMATION
  Report Type: Spontaneous
  Country: US (occurrence: None)
  Receive Date: 20171031
  Receipt Date: 20171031
  Transmission Date: 20180321
  Serious: Yes (Life-Threatening, Disabling, Other)
  Sender: FDA-Public Use
  Company Number: None

PATIENT
  Age: 43 Year
  Sex: Female
  Weight: 70.76 kg

DRUGS (7)
  1. CHASTE TREE BERRY [Concomitant]
  2. MIRENA [Suspect]
     Active Substance: LEVONORGESTREL
     Dates: start: 20140514, end: 20140730
  3. MAGNESIUM [Concomitant]
     Active Substance: MAGNESIUM
  4. VITAMIN C [Concomitant]
     Active Substance: ASCORBIC ACID
  5. VALIUM [Concomitant]
     Active Substance: DIAZEPAM
  6. ADDERALL [Concomitant]
     Active Substance: AMPHETAMINE ASPARTATE\AMPHETAMINE SULFATE\DEXTROAMPHETAMINE SACCHARATE\DEXTROAMPHETAMINE SULFATE
  7. CBD [Concomitant]
     Active Substance: CANNABIDIOL

REACTIONS (22)
  - Loss of personal independence in daily activities [None]
  - Idiopathic intracranial hypertension [None]
  - Thyroid disorder [None]
  - Hypothyroidism [None]
  - Abnormal behaviour [None]
  - Blindness transient [None]
  - Alopecia [None]
  - Hormone level abnormal [None]
  - Diplopia [None]
  - Laboratory test abnormal [None]
  - Suicidal ideation [None]
  - Palpitations [None]
  - Weight increased [None]
  - Menopause [None]
  - Drug effect decreased [None]
  - Anxiety [None]
  - Dissociation [None]
  - Crying [None]
  - Cystitis interstitial [None]
  - Back pain [None]
  - Paraesthesia [None]
  - Sensory disturbance [None]

NARRATIVE: CASE EVENT DATE: 20140601
